FAERS Safety Report 5099978-5 (Version None)
Quarter: 2006Q3

REPORT INFORMATION
  Report Type: 
  Country: None (occurrence: None)
  Receive Date: 20060906
  Receipt Date: 20060906
  Transmission Date: 20061208
  Serious: Yes (Hospitalization)
  Sender: FDA-Public Use
  Company Number: None

PATIENT
  Sex: Male
  Weight: 84.5958 kg

DRUGS (5)
  1. EQUETRO [Suspect]
     Indication: BIPOLAR DISORDER
     Dosage: 2 IN AM  3PM ORAL
     Route: 048
     Dates: start: 20060811, end: 20060827
  2. SEROQUEL [Concomitant]
  3. XANAX [Concomitant]
  4. AMBIEN [Concomitant]
  5. LITHIUM CARBONATE [Concomitant]

REACTIONS (2)
  - DIARRHOEA [None]
  - VOMITING [None]
